FAERS Safety Report 10671911 (Version 2)
Quarter: 2014Q4

REPORT INFORMATION
  Report Type: Spontaneous
  Country: CN (occurrence: CN)
  Receive Date: 20141223
  Receipt Date: 20141223
  Transmission Date: 20150529
  Serious: Yes (Death)
  Sender: FDA-Public Use
  Company Number: CN-ASTELLAS-2014US019498

PATIENT
  Age: 40 Year
  Sex: Female

DRUGS (2)
  1. ANTIFUNGAL [Concomitant]
     Active Substance: MICONAZOLE NITRATE\TERBINAFINE HYDROCHLORIDE
     Indication: FUNGAL INFECTION
     Dosage: UNK UNK, UNKNOWN FREQ.
     Route: 065
     Dates: start: 201412, end: 20141213
  2. MYCAMINE [Suspect]
     Active Substance: MICAFUNGIN SODIUM
     Indication: FUNGAL INFECTION
     Route: 041
     Dates: start: 20141010, end: 201412

REACTIONS (3)
  - Erythema [Not Recovered/Not Resolved]
  - Blood pressure increased [Not Recovered/Not Resolved]
  - Fungal infection [Fatal]

NARRATIVE: CASE EVENT DATE: 201412
